FAERS Safety Report 15766162 (Version 1)
Quarter: 2018Q4

REPORT INFORMATION
  Report Type: Other
  Country: ES (occurrence: ES)
  Receive Date: 20181227
  Receipt Date: 20181227
  Transmission Date: 20190205
  Serious: Yes (Other)
  Sender: FDA-Public Use
  Company Number: ES-APOTEX-2018AP028139

PATIENT
  Age: 45 Year
  Sex: Female
  Weight: 85 kg

DRUGS (1)
  1. ZOLPIDEM TARTRATO APOTEX COMPRIMIDOS RECUBIERTOS CON PELICULA EFG [Suspect]
     Active Substance: ZOLPIDEM TARTRATE
     Indication: PRODUCT USED FOR UNKNOWN INDICATION
     Dosage: UNK
     Route: 048
     Dates: start: 2018

REACTIONS (4)
  - Hyperhidrosis [Unknown]
  - Tremor [Unknown]
  - Gait disturbance [Unknown]
  - Palpitations [Unknown]

NARRATIVE: CASE EVENT DATE: 2018
